FAERS Safety Report 18393541 (Version 1)
Quarter: 2020Q4

REPORT INFORMATION
  Report Type: Spontaneous
  Country: US (occurrence: US)
  Receive Date: 20201016
  Receipt Date: 20201016
  Transmission Date: 20210114
  Serious: Yes (Hospitalization, Other)
  Sender: FDA-Public Use
  Company Number: US-PURDUE-USA-2020-0170712

PATIENT
  Sex: Female

DRUGS (8)
  1. OXYCODONE HCL TABLETS (RHODES 91-490) [Suspect]
     Active Substance: OXYCODONE HYDROCHLORIDE
     Indication: PRODUCT USED FOR UNKNOWN INDICATION
     Dosage: UNK
     Route: 048
  2. HYDROCODONE BITARTRATE (SIMILAR TO NDA 206627) [Suspect]
     Active Substance: HYDROCODONE BITARTRATE
     Indication: PAIN
     Dosage: UNK
     Route: 048
     Dates: start: 2005
  3. DILAUDID [Suspect]
     Active Substance: HYDROMORPHONE HYDROCHLORIDE
     Indication: PRODUCT USED FOR UNKNOWN INDICATION
     Dosage: UNK
     Route: 048
  4. HYDROCODONE BITARTRATE AND ACETAMINOPHEN [Suspect]
     Active Substance: ACETAMINOPHEN\HYDROCODONE BITARTRATE
     Indication: PRODUCT USED FOR UNKNOWN INDICATION
     Dosage: UNK
     Route: 048
  5. TRAMADOL. [Suspect]
     Active Substance: TRAMADOL
     Indication: PAIN
     Dosage: UNK
     Route: 065
  6. OXYCODONE HYDROCHLORIDE (SIMILAR TO NDA 22-272) [Suspect]
     Active Substance: OXYCODONE HYDROCHLORIDE
     Indication: PAIN
     Dosage: UNK
     Route: 048
  7. OXYCODONE HCL CR TABLETS (SIMILAR TO NDA 22-272) [Suspect]
     Active Substance: OXYCODONE HYDROCHLORIDE
     Indication: PRODUCT USED FOR UNKNOWN INDICATION
     Dosage: UNK
     Route: 048
  8. OXYCODONE/ ACETAMINOPHEN TABLETS [Suspect]
     Active Substance: ACETAMINOPHEN\OXYCODONE HYDROCHLORIDE
     Indication: PRODUCT USED FOR UNKNOWN INDICATION
     Dosage: UNK
     Route: 048

REACTIONS (31)
  - Injury [Unknown]
  - Suicidal ideation [Unknown]
  - Amniotic fluid volume decreased [Unknown]
  - Social avoidant behaviour [Unknown]
  - Memory impairment [Unknown]
  - Panic attack [Unknown]
  - Fall [Unknown]
  - Pain [Unknown]
  - Drug withdrawal syndrome [Unknown]
  - Maternal exposure during pregnancy [Recovered/Resolved]
  - Migraine [Unknown]
  - Suicide attempt [Unknown]
  - Cognitive disorder [Unknown]
  - Gastrointestinal disorder [Unknown]
  - Sensory disturbance [Unknown]
  - Hyperaesthesia [Unknown]
  - Mania [Unknown]
  - Amnesia [Unknown]
  - Emotional distress [Unknown]
  - HELLP syndrome [Unknown]
  - Premature labour [Unknown]
  - Anger [Unknown]
  - Stress [Unknown]
  - Illness [Unknown]
  - Drug dependence [Unknown]
  - Somnolence [Unknown]
  - Psychotic disorder [Unknown]
  - Sleep disorder [Unknown]
  - Aphasia [Unknown]
  - Depression [Unknown]
  - Anxiety [Unknown]

NARRATIVE: CASE EVENT DATE: 2007
